FAERS Safety Report 8814185 (Version 1)
Quarter: 2012Q4

REPORT INFORMATION
  Report Type: Spontaneous
  Country: US (occurrence: None)
  Receive Date: 20120926
  Receipt Date: 20120926
  Transmission Date: 20130627
  Serious: Yes (Hospitalization)
  Sender: FDA-Public Use
  Company Number: None

PATIENT
  Sex: Female
  Weight: 68.49 kg

DRUGS (1)
  1. NITROFURANTOIN [Suspect]
     Indication: URINARY TRACT INFECTION
     Dosage: 100mg bid po
     Route: 048
     Dates: start: 20120910, end: 20120918

REACTIONS (5)
  - Pyrexia [None]
  - Chills [None]
  - Nausea [None]
  - Dyspnoea [None]
  - Heart rate increased [None]
